FAERS Safety Report 15992156 (Version 2)
Quarter: 2019Q2

REPORT INFORMATION
  Report Type: Spontaneous
  Country: US (occurrence: US)
  Receive Date: 20190221
  Receipt Date: 20190408
  Transmission Date: 20190711
  Serious: Yes (Other)
  Sender: FDA-Public Use
  Company Number: US-ASTRAZENECA-2018SF22160

PATIENT
  Age: 22099 Day
  Sex: Female

DRUGS (15)
  1. PRAVASTATIN. [Concomitant]
     Active Substance: PRAVASTATIN
  2. AMLODIPINE [Concomitant]
     Active Substance: AMLODIPINE BESYLATE
  3. PREVACID 24 HR [Suspect]
     Active Substance: LANSOPRAZOLE
     Indication: GASTROOESOPHAGEAL REFLUX DISEASE
     Route: 065
     Dates: start: 2012, end: 2019
  4. NEXIUM 24HR [Suspect]
     Active Substance: ESOMEPRAZOLE MAGNESIUM
     Indication: GASTROOESOPHAGEAL REFLUX DISEASE
     Route: 048
     Dates: start: 2012, end: 2019
  5. NEXIUM 24HR [Suspect]
     Active Substance: ESOMEPRAZOLE MAGNESIUM
     Indication: GASTROOESOPHAGEAL REFLUX DISEASE
     Route: 048
     Dates: start: 2014, end: 2019
  6. OMEPRAZOLE. [Suspect]
     Active Substance: OMEPRAZOLE
     Indication: GASTROOESOPHAGEAL REFLUX DISEASE
     Dosage: 20.0MG UNKNOWN
     Route: 065
     Dates: start: 2007, end: 2011
  7. DICLOFENAC [Concomitant]
     Active Substance: DICLOFENAC
     Dates: start: 20090414
  8. ALPRAZOLAM. [Concomitant]
     Active Substance: ALPRAZOLAM
  9. LISINOPRIL. [Concomitant]
     Active Substance: LISINOPRIL
  10. CLONIDINE. [Concomitant]
     Active Substance: CLONIDINE
  11. ALLOPURINOL. [Concomitant]
     Active Substance: ALLOPURINOL
  12. LABETALOL [Concomitant]
     Active Substance: LABETALOL\LABETALOL HYDROCHLORIDE
  13. ALLOPURINOL. [Concomitant]
     Active Substance: ALLOPURINOL
  14. GLYBURIDE. [Concomitant]
     Active Substance: GLYBURIDE
  15. LABETALOL [Concomitant]
     Active Substance: LABETALOL\LABETALOL HYDROCHLORIDE

REACTIONS (2)
  - Acute kidney injury [Not Recovered/Not Resolved]
  - Chronic kidney disease [Not Recovered/Not Resolved]

NARRATIVE: CASE EVENT DATE: 20150313
